FAERS Safety Report 21227924 (Version 2)
Quarter: 2022Q3

REPORT INFORMATION
  Report Type: Report from Study
  Country: CA (occurrence: CA)
  Receive Date: 20220818
  Receipt Date: 20220819
  Transmission Date: 20221027
  Serious: Yes (Other)
  Sender: FDA-Public Use
  Company Number: CA-JNJFOC-20220825398

PATIENT
  Age: 16 Year
  Sex: Female

DRUGS (2)
  1. REMICADE [Suspect]
     Active Substance: INFLIXIMAB
     Indication: Colitis ulcerative
     Route: 042
     Dates: start: 20160608
  2. REMICADE [Suspect]
     Active Substance: INFLIXIMAB
     Dosage: 900 MG
     Route: 042

REACTIONS (2)
  - Colitis ulcerative [Unknown]
  - Off label use [Unknown]

NARRATIVE: CASE EVENT DATE: 20160608
